FAERS Safety Report 9146449 (Version 2)
Quarter: 2013Q2

REPORT INFORMATION
  Report Type: Report from Study
  Country: JP (occurrence: JP)
  Receive Date: 20130307
  Receipt Date: 20130513
  Transmission Date: 20140414
  Serious: Yes (Hospitalization)
  Sender: FDA-Public Use
  Company Number: JP-SANOFI-AVENTIS-2013SA007854

PATIENT
  Age: 74 Year
  Sex: Male
  Weight: 58.7 kg

DRUGS (6)
  1. CABAZITAXEL [Suspect]
     Indication: HORMONE-REFRACTORY PROSTATE CANCER
     Dosage: ON DAY 1
     Route: 041
     Dates: start: 20120406, end: 20120406
  2. CABAZITAXEL [Suspect]
     Indication: HORMONE-REFRACTORY PROSTATE CANCER
     Dosage: ON DAY 1
     Route: 041
     Dates: start: 20120724, end: 20120724
  3. PREDNISOLONE [Suspect]
     Indication: HORMONE-REFRACTORY PROSTATE CANCER
     Route: 048
     Dates: start: 20120406
  4. POVIDONE IODINE [Concomitant]
     Indication: INFECTION PROPHYLAXIS
     Dosage: 5 TIMES/DAY, APPROPRIATE DOSE, GARGLE SOLUTION
     Route: 049
     Dates: start: 20120224
  5. MAGNESIUM OXIDE [Concomitant]
     Indication: PROPHYLAXIS
     Route: 048
     Dates: start: 20120416
  6. MAGNESIUM OXIDE [Concomitant]
     Indication: CONSTIPATION
     Route: 048
     Dates: start: 20120416

REACTIONS (1)
  - Cataract [Recovered/Resolved]
